FAERS Safety Report 16721443 (Version 1)
Quarter: 2019Q3

REPORT INFORMATION
  Report Type: Spontaneous
  Country: US (occurrence: US)
  Receive Date: 20190703
  Receipt Date: 20190703
  Transmission Date: 20191005
  Serious: No
  Sender: FDA-Public Use
  Company Number: None

PATIENT
  Age: 43 Year
  Sex: Female

DRUGS (1)
  1. ORENCIA [Suspect]
     Active Substance: ABATACEPT
     Dosage: ?          OTHER
     Route: 058
     Dates: start: 20190221

REACTIONS (3)
  - Gait disturbance [None]
  - Product dose omission [None]
  - Pain [None]

NARRATIVE: CASE EVENT DATE: 20190619
